FAERS Safety Report 18521524 (Version 4)
Quarter: 2020Q4

REPORT INFORMATION
  Report Type: Spontaneous
  Country: HR (occurrence: HR)
  Receive Date: 20201119
  Receipt Date: 20201222
  Transmission Date: 20210114
  Serious: Yes (Other)
  Sender: FDA-Public Use
  Company Number: NVSC2020HR306344

PATIENT
  Age: 24 Year
  Sex: Male

DRUGS (2)
  1. ETANERCEPT [Suspect]
     Active Substance: ETANERCEPT
     Indication: JUVENILE SPONDYLOARTHRITIS
     Dosage: UNK
     Route: 065
  2. SECUKINUMAB. [Concomitant]
     Active Substance: SECUKINUMAB
     Indication: PRODUCT USED FOR UNKNOWN INDICATION
     Dosage: UNK
     Route: 065

REACTIONS (3)
  - Relapsing-remitting multiple sclerosis [Not Recovered/Not Resolved]
  - Off label use [Unknown]
  - Product use issue [Unknown]
